FAERS Safety Report 24541874 (Version 1)
Quarter: 2024Q4

REPORT INFORMATION
  Report Type: Report from Study
  Country: US (occurrence: US)
  Receive Date: 20241023
  Receipt Date: 20241023
  Transmission Date: 20250114
  Serious: Yes (Hospitalization, Other)
  Sender: ALEXION PHARMACEUTICALS
  Company Number: US-AstraZeneca-CH-00718418A

PATIENT
  Weight: 63.502 kg

DRUGS (4)
  1. OSIMERTINIB [Suspect]
     Active Substance: OSIMERTINIB
     Indication: Lung neoplasm malignant
  2. OSIMERTINIB [Suspect]
     Active Substance: OSIMERTINIB
  3. OSIMERTINIB [Suspect]
     Active Substance: OSIMERTINIB
  4. OSIMERTINIB [Suspect]
     Active Substance: OSIMERTINIB

REACTIONS (1)
  - Cerebrovascular accident [Recovering/Resolving]
